APPROVED DRUG PRODUCT: NIFEDIPINE
Active Ingredient: NIFEDIPINE
Strength: 90MG
Dosage Form/Route: TABLET, EXTENDED RELEASE;ORAL
Application: A077899 | Product #003
Applicant: PH HEALTH LTD
Approved: May 25, 2012 | RLD: No | RS: No | Type: DISCN